FAERS Safety Report 8967648 (Version 1)
Quarter: 2012Q4

REPORT INFORMATION
  Report Type: Spontaneous
  Country: US (occurrence: None)
  Receive Date: 20121204
  Receipt Date: 20121204
  Transmission Date: 20130627
  Serious: Yes (Other)
  Sender: FDA-Public Use
  Company Number: 2012AP004101

PATIENT
  Age: 10 Year
  Sex: Male

DRUGS (10)
  1. LEFLUNOMIDE [Suspect]
     Indication: MOLLUSCUM CONTAGIOSUM
  2. LEFLUNOMIDE [Suspect]
     Indication: OFF LABEL USE
  3. LEFLUNOMIDE [Suspect]
     Indication: MOLLUSCUM CONTAGIOSUM
  4. LEFLUNOMIDE [Suspect]
     Indication: OFF LABEL USE
  5. MYCOPHENOLATE [Suspect]
  6. TACROLIMUS [Suspect]
  7. ALBUTEROL [Concomitant]
  8. MONTELUKAST [Concomitant]
  9. CORTICOSTEROIDS [Concomitant]
  10. TERAZOSIN [Concomitant]

REACTIONS (4)
  - Graft dysfunction [None]
  - Hydronephrosis [None]
  - Molluscum contagiosum [None]
  - Off label use [None]
